FAERS Safety Report 4518931-0 (Version None)
Quarter: 2004Q4

REPORT INFORMATION
  Report Type: 
  Country: None (occurrence: None)
  Receive Date: 20041203
  Receipt Date: 20041203
  Transmission Date: 20050328
  Serious: Yes (Other)
  Sender: FDA-Public Use
  Company Number: None

PATIENT
  Sex: Male
  Weight: 68.4932 kg

DRUGS (2)
  1. OXYCONTIN [Suspect]
     Indication: DECUBITUS ULCER
     Dosage: 80 MG Q 8 HRS
  2. OXYCONTIN [Suspect]
     Indication: PARAPLEGIA
     Dosage: 80 MG Q 8 HRS

REACTIONS (3)
  - ABDOMINAL PAIN [None]
  - DIZZINESS [None]
  - NAUSEA [None]
